FAERS Safety Report 6304455-7 (Version None)
Quarter: 2009Q3

REPORT INFORMATION
  Report Type: 
  Country: None (occurrence: None)
  Receive Date: 20090806
  Receipt Date: 20090728
  Transmission Date: 20100115
  Serious: Yes (Hospitalization)
  Sender: FDA-Public Use
  Company Number: 09US002809

PATIENT
  Age: 67 Year
  Sex: Female
  Weight: 63.5 kg

DRUGS (3)
  1. ASPIRIN [Suspect]
     Indication: ISCHAEMIC HEART DISEASE PROPHYLAXIS
     Dosage: 325 MG, QD, ORAL
     Route: 048
     Dates: start: 20090524
  2. PLAVIX [Concomitant]
  3. COREG [Concomitant]

REACTIONS (5)
  - ANXIETY [None]
  - DRUG HYPERSENSITIVITY [None]
  - DYSPHAGIA [None]
  - FOOD ALLERGY [None]
  - TONGUE DISORDER [None]
